FAERS Safety Report 8134485-4 (Version None)
Quarter: 2012Q1

REPORT INFORMATION
  Report Type: 
  Country: None (occurrence: None)
  Receive Date: 20120209
  Receipt Date: 20120128
  Transmission Date: 20120608
  Serious: Yes (Other)
  Sender: FDA-Public Use
  Company Number: 2010001203

PATIENT
  Age: 48 Year
  Sex: Male

DRUGS (1)
  1. TARCEVA [Suspect]
     Indication: LUNG NEOPLASM MALIGNANT
     Dosage: 150 MG, UID/QD, ORAL
     Route: 048
     Dates: start: 20090702, end: 20100212

REACTIONS (3)
  - SKIN TOXICITY [None]
  - DISEASE PROGRESSION [None]
  - CONJUNCTIVITIS [None]
